FAERS Safety Report 25194470 (Version 2)
Quarter: 2025Q2

REPORT INFORMATION
  Report Type: Report from Study
  Country: US (occurrence: US)
  Receive Date: 20250414
  Receipt Date: 20250509
  Transmission Date: 20250716
  Serious: Yes (Hospitalization, Other)
  Sender: ABBVIE
  Company Number: US-ABBVIE-6226132

PATIENT
  Age: 43 Year
  Sex: Female
  Weight: 130 kg

DRUGS (1)
  1. HUMIRA [Suspect]
     Active Substance: ADALIMUMAB
     Indication: Crohn^s disease
     Route: 058
     Dates: start: 20170314, end: 202501

REACTIONS (8)
  - Endometriosis [Recovered/Resolved]
  - Anal incontinence [Recovered/Resolved]
  - Crohn^s disease [Recovering/Resolving]
  - Pulmonary oedema [Recovering/Resolving]
  - Wound drainage [Recovering/Resolving]
  - Intestinal stenosis [Recovered/Resolved]
  - Post procedural fistula [Not Recovered/Not Resolved]
  - Volvulus [Recovered/Resolved]

NARRATIVE: CASE EVENT DATE: 20250201
